FAERS Safety Report 16697354 (Version 1)
Quarter: 2019Q3

REPORT INFORMATION
  Report Type: Spontaneous
  Country: US (occurrence: US)
  Receive Date: 20190813
  Receipt Date: 20190813
  Transmission Date: 20191004
  Serious: No
  Sender: FDA-Public Use
  Company Number: US-JNJFOC-20190811859

PATIENT
  Age: 66 Year
  Sex: Male
  Weight: 118.04 kg

DRUGS (1)
  1. STELARA [Suspect]
     Active Substance: USTEKINUMAB
     Indication: RHEUMATOID ARTHRITIS
     Route: 058
     Dates: start: 2017

REACTIONS (2)
  - Wrong technique in product usage process [Unknown]
  - Product dose omission [Unknown]

NARRATIVE: CASE EVENT DATE: 20190808
